FAERS Safety Report 10648329 (Version 2)
Quarter: 2014Q4

REPORT INFORMATION
  Report Type: Spontaneous
  Country: DE (occurrence: DE)
  Receive Date: 20141212
  Receipt Date: 20141212
  Transmission Date: 20150529
  Serious: Yes (Other)
  Sender: FDA-Public Use
  Company Number: CHPA2014DE015409

PATIENT
  Age: 76 Year
  Sex: Female

DRUGS (2)
  1. SCOPODERM TTS [Suspect]
     Active Substance: SCOPOLAMINE
     Indication: SALIVARY HYPERSECRETION
     Dosage: 1 DF, Q72H (1 PATCH FOR 3 DAYS BEHIND EAR [0.5MG])
     Route: 062
     Dates: start: 201106
  2. SCOPODERM TTS [Suspect]
     Active Substance: SCOPOLAMINE
     Indication: OFF LABEL USE

REACTIONS (4)
  - Application site inflammation [Not Recovered/Not Resolved]
  - Application site exfoliation [Unknown]
  - Balance disorder [Unknown]
  - Dizziness [Unknown]
